FAERS Safety Report 5167921-6 (Version None)
Quarter: 2006Q4

REPORT INFORMATION
  Report Type: 
  Country: None (occurrence: None)
  Receive Date: 20061208
  Receipt Date: 20050906
  Transmission Date: 20070319
  Serious: No
  Sender: FDA-Public Use
  Company Number: US-GLAXOSMITHKLINE-A0573121A

PATIENT
  Age: 56 Year
  Sex: Female

DRUGS (5)
  1. AVANDAMET [Suspect]
     Route: 048
     Dates: start: 20050901
  2. AVANDIA [Suspect]
     Dosage: 2MG TWICE PER DAY
     Dates: start: 20050801
  3. METFORMIN [Suspect]
     Dates: start: 20050801
  4. LISINOPRIL [Concomitant]
  5. HYDROCHLOROTHIAZIDE [Concomitant]

REACTIONS (2)
  - BLOOD GLUCOSE FLUCTUATION [None]
  - BLOOD GLUCOSE INCREASED [None]
